FAERS Safety Report 7294201-5 (Version None)
Quarter: 2011Q1

REPORT INFORMATION
  Report Type: 
  Country: None (occurrence: None)
  Receive Date: 20110215
  Receipt Date: 20110203
  Transmission Date: 20110831
  Serious: Yes (Hospitalization)
  Sender: FDA-Public Use
  Company Number: US-ELI_LILLY_AND_COMPANY-US201007004580

PATIENT
  Sex: Female

DRUGS (3)
  1. FORTEO [Suspect]
     Indication: OSTEOPOROSIS
     Dosage: 20 UG, DAILY (1/D)
     Route: 058
     Dates: start: 20100625
  2. FORTEO [Suspect]
     Dosage: 20 UG, DAILY (1/D)
     Dates: start: 20101016
  3. FORTEO [Suspect]
     Dosage: 20 UG, DAILY (1/D)

REACTIONS (6)
  - ARTHRALGIA [None]
  - ARTHRITIS [None]
  - INJECTION SITE PAIN [None]
  - PAIN [None]
  - MUSCLE SPASMS [None]
  - HOSPITALISATION [None]
